FAERS Safety Report 11312983 (Version 1)
Quarter: 2015Q3

REPORT INFORMATION
  Report Type: Spontaneous
  Country: US (occurrence: None)
  Receive Date: 20150724
  Receipt Date: 20150724
  Transmission Date: 20151125
  Serious: No
  Sender: FDA-Public Use
  Company Number: None

PATIENT
  Age: 49 Year
  Sex: Female

DRUGS (1)
  1. ORENCIA [Suspect]
     Active Substance: ABATACEPT
     Indication: RHEUMATOID ARTHRITIS
     Route: 058
     Dates: start: 20150706

REACTIONS (8)
  - Back pain [None]
  - Hyperaesthesia [None]
  - Headache [None]
  - Abdominal pain upper [None]
  - Malaise [None]
  - Nausea [None]
  - Abdominal pain [None]
  - Muscular weakness [None]

NARRATIVE: CASE EVENT DATE: 20150723
